FAERS Safety Report 8531719 (Version 4)
Quarter: 2014Q1

REPORT INFORMATION
  Report Type: Spontaneous
  Country: ES (occurrence: ES)
  Receive Date: 20120426
  Receipt Date: 20140307
  Transmission Date: 20141002
  Serious: Yes (Life-Threatening, Hospitalization, Other)
  Sender: FDA-Public Use
  Company Number: ES-ELI_LILLY_AND_COMPANY-ES201204006006

PATIENT
  Age: 58 Year
  Sex: Male

DRUGS (7)
  1. GEMCITABINE HYDROCHLORIDE [Suspect]
     Indication: PANCREATIC CARCINOMA
     Dosage: 601 MG/M2, QD
     Route: 042
     Dates: start: 20080922
  2. SORAFENIB [Suspect]
     Indication: PANCREATIC CARCINOMA
     Dosage: UNK, UNKNOWN
     Route: 065
  3. OMEPRAZOL [Concomitant]
     Indication: PROPHYLAXIS AGAINST GASTROINTESTINAL ULCER
     Dosage: 20 MG, UNKNOWN
     Route: 048
  4. FENTANILO [Concomitant]
     Indication: ABDOMINAL PAIN
     Dosage: 25 MG, UNK
     Route: 062
  5. ALPRAZOLAM [Concomitant]
     Indication: ANXIETY
     Dosage: 0.5 MG, UNKNOWN
     Route: 048
  6. SEVREDOL [Concomitant]
     Indication: ABDOMINAL PAIN
     Dosage: 20 MG, UNKNOWN
     Route: 048
  7. IBUPROFENO [Concomitant]
     Indication: ABDOMINAL PAIN
     Dosage: 1600 MG, UNKNOWN

REACTIONS (1)
  - Posterior reversible encephalopathy syndrome [Recovered/Resolved]
